FAERS Safety Report 25833369 (Version 2)
Quarter: 2025Q4

REPORT INFORMATION
  Report Type: Spontaneous
  Country: JP (occurrence: JP)
  Receive Date: 20250922
  Receipt Date: 20251009
  Transmission Date: 20260119
  Serious: Yes (Other)
  Sender: ABBVIE
  Company Number: JP-ABBVIE-6467173

PATIENT
  Age: 50 Year
  Sex: Female

DRUGS (3)
  1. RINVOQ [Suspect]
     Active Substance: UPADACITINIB
     Indication: Crohn^s disease
     Dosage: 15 MILLIGRAM
     Route: 048
     Dates: start: 20240603
  2. RINVOQ [Suspect]
     Active Substance: UPADACITINIB
     Indication: Crohn^s disease
     Dosage: FORM STRENGTH: 7.5 MILLIGRAM
     Route: 048
  3. RINVOQ [Suspect]
     Active Substance: UPADACITINIB
     Indication: Crohn^s disease
     Dosage: 30 MILLIGRAM
     Route: 048
     Dates: start: 20250916

REACTIONS (5)
  - Crohn^s disease [Unknown]
  - Product residue present [Unknown]
  - Therapeutic product effect decreased [Recovered/Resolved]
  - Therapeutic response unexpected [Unknown]
  - Malaise [Unknown]

NARRATIVE: CASE EVENT DATE: 20250101
